FAERS Safety Report 9982179 (Version 1)
Quarter: 2014Q1

REPORT INFORMATION
  Report Type: Report from Study
  Country: US (occurrence: US)
  Receive Date: 20140307
  Receipt Date: 20140307
  Transmission Date: 20141002
  Serious: No
  Sender: FDA-Public Use
  Company Number: US-ABBVIE-13P-163-1177217-00

PATIENT
  Age: 35 Year
  Sex: Male
  Weight: 143.46 kg

DRUGS (9)
  1. HUMIRA [Suspect]
     Indication: RHEUMATOID ARTHRITIS
     Dates: start: 201308, end: 201310
  2. HUMIRA [Suspect]
     Indication: PSORIASIS
     Dates: start: 201310
  3. HUMIRA [Suspect]
     Indication: PSORIATIC ARTHROPATHY
  4. DIOVAN [Concomitant]
     Indication: HYPERTENSION
  5. AMLODIPINE [Concomitant]
     Indication: HYPERTENSION
  6. VITAMIN E [Concomitant]
     Indication: LIVER DISORDER
  7. VITAMIN E [Concomitant]
     Indication: PROPHYLAXIS
  8. MILK THISTLE [Concomitant]
     Indication: LIVER DISORDER
  9. MILK THISTLE [Concomitant]
     Indication: PROPHYLAXIS

REACTIONS (3)
  - Tendon pain [Not Recovered/Not Resolved]
  - Myalgia [Not Recovered/Not Resolved]
  - Arthralgia [Not Recovered/Not Resolved]
